FAERS Safety Report 4578088-7 (Version None)
Quarter: 2005Q1

REPORT INFORMATION
  Report Type: 
  Country: None (occurrence: None)
  Receive Date: 20050209
  Receipt Date: 20050125
  Transmission Date: 20050727
  Serious: Yes (Death, Hospitalization)
  Sender: FDA-Public Use
  Company Number: EWC050142445

PATIENT
  Age: 10 Week
  Sex: Female

DRUGS (1)
  1. OLANZAPINE [Suspect]
     Dates: start: 20030101

REACTIONS (7)
  - BRONCHOPNEUMONIA [None]
  - DIARRHOEA [None]
  - DRUG EXPOSURE DURING PREGNANCY [None]
  - GENERAL PHYSICAL HEALTH DETERIORATION [None]
  - RESPIRATORY TRACT INFECTION VIRAL [None]
  - SALMONELLOSIS [None]
  - SEPSIS [None]
